FAERS Safety Report 6647393-2 (Version None)
Quarter: 2010Q1

REPORT INFORMATION
  Report Type: 
  Country: None (occurrence: None)
  Receive Date: 20100323
  Receipt Date: 20100312
  Transmission Date: 20100710
  Serious: Yes (Death)
  Sender: FDA-Public Use
  Company Number: US-BAYER-201016506NA

PATIENT

DRUGS (1)
  1. AVELOX [Suspect]
     Route: 048

REACTIONS (2)
  - PALLOR [None]
  - SKIN EXFOLIATION [None]
